FAERS Safety Report 4113785 (Version 2)
Quarter: 2020Q3

REPORT INFORMATION
  Report Type: Report from Study
  Country: FI (occurrence: FI)
  Receive Date: 20040317
  Receipt Date: 20040908
  Transmission Date: 20201104
  Serious: Yes (Hospitalization)
  Sender: FDA-Public Use
  Company Number: FI-JNJFOC-20040301255

PATIENT
  Age: 73 Year
  Sex: Male
  Weight: 84 kg

DRUGS (16)
  1. REMINYL [Suspect]
     Active Substance: GALANTAMINE
     Route: 049
  2. ISOSORBIDE DINITRATE. [Concomitant]
     Active Substance: ISOSORBIDE DINITRATE
     Route: 049
  3. ACRIVASTINE [Concomitant]
     Active Substance: ACRIVASTINE
     Route: 049
  4. PERSANTINE [Concomitant]
     Active Substance: DIPYRIDAMOLE
     Route: 049
  5. LIPITOR [Concomitant]
     Active Substance: ATORVASTATIN CALCIUM
     Route: 049
  6. TAMSULOSIN HYDROCHLORIDE. [Concomitant]
     Active Substance: TAMSULOSIN HYDROCHLORIDE
     Route: 049
  7. REMINYL [Suspect]
     Active Substance: GALANTAMINE
     Route: 049
  8. PSEUDOEPHEDRINE HYDROCHLORIDE. [Concomitant]
     Active Substance: PSEUDOEPHEDRINE HYDROCHLORIDE
     Route: 049
  9. METOPROLOL TARTRATE. [Concomitant]
     Active Substance: METOPROLOL TARTRATE
     Route: 049
  10. PRIMASPAN [Concomitant]
     Route: 049
  11. ISOSORBIDE MONONITRATE. [Concomitant]
     Active Substance: ISOSORBIDE MONONITRATE
     Route: 049
  12. NISOLDIPINE. [Concomitant]
     Active Substance: NISOLDIPINE
     Route: 049
  13. ATROVENT [Concomitant]
     Active Substance: IPRATROPIUM BROMIDE
     Route: 045
  14. CITALOPRAM HYDROBROMIDE. [Concomitant]
     Active Substance: CITALOPRAM HYDROBROMIDE
     Route: 049
  15. DETROSITOL [Concomitant]
     Route: 049
  16. SEROQUEL [Concomitant]
     Active Substance: QUETIAPINE FUMARATE
     Route: 049

REACTIONS (2)
  - Pneumonia [None]
  - General physical health deterioration [Recovered/Resolved]

NARRATIVE: CASE EVENT DATE: 20040227
